FAERS Safety Report 23049120 (Version 2)
Quarter: 2023Q4

REPORT INFORMATION
  Report Type: Spontaneous
  Country: JP (occurrence: JP)
  Receive Date: 20231010
  Receipt Date: 20231016
  Transmission Date: 20240109
  Serious: No
  Sender: FDA-Public Use
  Company Number: JP-MSD-2310JPN000364J

PATIENT
  Age: 71 Year
  Sex: Female

DRUGS (4)
  1. LAGEVRIO [Suspect]
     Active Substance: MOLNUPIRAVIR
     Indication: COVID-19 treatment
     Dosage: 800 MILLIGRAM, BID
     Route: 048
     Dates: start: 20230816, end: 20230820
  2. BROMISOVAL\DIHYDROCODEINE PHOSPHATE\DYPHYLLINE\METHYLEPHEDRINE HYDROCH [Concomitant]
     Active Substance: BROMISOVAL\DIHYDROCODEINE PHOSPHATE\DYPHYLLINE\METHYLEPHEDRINE HYDROCHLORIDE, (+/-)-
     Dosage: UNK
     Route: 048
     Dates: start: 20230816, end: 20230820
  3. CARBOCYSTEINE [Concomitant]
     Active Substance: CARBOCYSTEINE
     Dosage: UNK
     Route: 048
     Dates: start: 20230816, end: 20230820
  4. TRANSAMIN [Concomitant]
     Active Substance: TRANEXAMIC ACID
     Dosage: UNK
     Route: 048
     Dates: start: 20230816, end: 20230820

REACTIONS (1)
  - Drug eruption [Recovered/Resolved]

NARRATIVE: CASE EVENT DATE: 20230819
